FAERS Safety Report 14184133 (Version 2)
Quarter: 2017Q4

REPORT INFORMATION
  Report Type: Report from Study
  Country: JP (occurrence: JP)
  Receive Date: 20171113
  Receipt Date: 20171213
  Transmission Date: 20180321
  Serious: Yes (Death)
  Sender: FDA-Public Use
  Company Number: JP-UCBSA-2017045239

PATIENT
  Age: 74 Year
  Sex: Female
  Weight: 60 kg

DRUGS (18)
  1. DEXTROSE. [Concomitant]
     Active Substance: DEXTROSE
     Indication: FLUID REPLACEMENT
     Dosage: 300 ML, UNK
     Route: 042
     Dates: start: 20160415, end: 20160422
  2. LEVETIRACETAM. [Suspect]
     Active Substance: LEVETIRACETAM
     Indication: PARTIAL SEIZURES WITH SECONDARY GENERALISATION
     Dosage: 500 MG, ONCE DAILY (QD)
     Route: 041
     Dates: start: 20160419, end: 20160420
  3. LEVETIRACETAM. [Suspect]
     Active Substance: LEVETIRACETAM
     Dosage: 250 MG, 2X/DAY (BID)
     Route: 041
     Dates: start: 20160420, end: 20160420
  4. LEVETIRACETAM. [Suspect]
     Active Substance: LEVETIRACETAM
     Dosage: 500 MG, 2X/DAY (BID)
     Route: 041
     Dates: start: 20160421, end: 20160422
  5. E KEPPRA [Suspect]
     Active Substance: LEVETIRACETAM
     Indication: PARTIAL SEIZURES WITH SECONDARY GENERALISATION
     Dosage: 250 MG, 2X/DAY (BID)
     Route: 048
     Dates: start: 20160423
  6. FOSPHENYTOIN SODIUM. [Concomitant]
     Active Substance: FOSPHENYTOIN SODIUM
     Indication: PARTIAL SEIZURES WITH SECONDARY GENERALISATION
     Dosage: 750 MG, ONCE DAILY (QD)
     Route: 042
     Dates: start: 20160419, end: 20160419
  7. FOSPHENYTOIN SODIUM. [Concomitant]
     Active Substance: FOSPHENYTOIN SODIUM
     Dosage: 375 MG, ONCE DAILY (QD)
     Route: 042
     Dates: start: 20160420, end: 20160420
  8. CERCINE [Concomitant]
     Active Substance: DIAZEPAM
     Dosage: 20 MG, ONCE DAILY (QD)
     Route: 042
     Dates: start: 20160420, end: 20160420
  9. CERCINE [Concomitant]
     Active Substance: DIAZEPAM
     Indication: PARTIAL SEIZURES WITH SECONDARY GENERALISATION
     Dosage: 25 MG, ONCE DAILY (QD)
     Route: 042
     Dates: start: 20160419, end: 20160419
  10. DORMICUM [Concomitant]
     Indication: PARTIAL SEIZURES WITH SECONDARY GENERALISATION
     Route: 042
     Dates: start: 20160420, end: 20160420
  11. HANP [Concomitant]
     Active Substance: CARPERITIDE
     Indication: CARDIAC FAILURE
     Dosage: 2000 ?G, UNK
     Dates: start: 20160415, end: 20160502
  12. ZOSYN [Concomitant]
     Active Substance: PIPERACILLIN SODIUM\TAZOBACTAM SODIUM
     Indication: BRONCHITIS
     Dosage: 4.5 G, 2X/DAY (BID)
     Route: 042
     Dates: start: 20160415, end: 20160420
  13. NEOAMIYU [Concomitant]
     Active Substance: AMINO ACIDS
     Indication: FLUID REPLACEMENT
     Dosage: 200 ML, UNK
     Route: 041
     Dates: start: 20160415, end: 20160422
  14. MEROPEN [Concomitant]
     Active Substance: MEROPENEM
     Indication: BRONCHITIS
     Dosage: 0.5 G, 2X/DAY (BID)
     Route: 042
     Dates: start: 20160420, end: 20160422
  15. INOVAN [Concomitant]
     Active Substance: DOPAMINE HYDROCHLORIDE
     Indication: HYPOTENSION
     Dosage: 150 ML, UNK
     Route: 041
     Dates: start: 20160419, end: 20160422
  16. CATACLOT [Concomitant]
     Indication: CEREBRAL INFARCTION
     Dosage: 80 MG, 2X/DAY (BID)
     Route: 042
     Dates: start: 20160409, end: 20160422
  17. NEOPHYLLIN [Concomitant]
     Active Substance: AMINOPHYLLINE
     Indication: ASTHMA
     Dosage: 20 MG, 2X/DAY (BID)
     Route: 042
     Dates: start: 20160415, end: 20160420
  18. OLIVES [Concomitant]
     Active Substance: LIDOCAINE HYDROCHLORIDE
     Indication: ARRHYTHMIA
     Dosage: 200 ML, UNK
     Dates: start: 20160417, end: 20160426

REACTIONS (5)
  - Haematocrit decreased [Not Recovered/Not Resolved]
  - Gamma-glutamyltransferase increased [Not Recovered/Not Resolved]
  - Blood urea increased [Not Recovered/Not Resolved]
  - Intestinal perforation [Fatal]
  - Blood alkaline phosphatase increased [Not Recovered/Not Resolved]

NARRATIVE: CASE EVENT DATE: 20160426
